FAERS Safety Report 10044936 (Version 1)
Quarter: 2014Q1

REPORT INFORMATION
  Report Type: Spontaneous
  Country: KR (occurrence: KR)
  Receive Date: 20140328
  Receipt Date: 20140328
  Transmission Date: 20141002
  Serious: Yes (Other)
  Sender: FDA-Public Use
  Company Number: KR-GLAXOSMITHKLINE-B0980770A

PATIENT
  Age: 62 Year
  Sex: Male
  Weight: 72 kg

DRUGS (2)
  1. ADEFOVIR [Suspect]
     Indication: HEPATITIS B
     Dosage: 10MG PER DAY
     Route: 065
     Dates: start: 2005
  2. LAMIVUDINE-HBV [Suspect]
     Indication: HEPATITIS B
     Route: 065
     Dates: start: 2003, end: 2005

REACTIONS (19)
  - Drug resistance [Unknown]
  - Rib fracture [Unknown]
  - Back pain [Unknown]
  - Arthralgia [Unknown]
  - Body height below normal [Unknown]
  - Tenderness [Unknown]
  - Hypouricaemia [Unknown]
  - Blood creatinine increased [Unknown]
  - Blood alkaline phosphatase increased [Unknown]
  - Glomerular filtration rate decreased [Unknown]
  - Albumin urine [Unknown]
  - Glucose urine present [Unknown]
  - Proteinuria [Unknown]
  - Bone pain [Unknown]
  - Fracture [Unknown]
  - Bone density decreased [Unknown]
  - Musculoskeletal pain [Unknown]
  - Osteomalacia [Recovering/Resolving]
  - Hypophosphataemia [Recovering/Resolving]
